FAERS Safety Report 10083005 (Version 2)
Quarter: 2014Q2

REPORT INFORMATION
  Report Type: Spontaneous
  Country: BE (occurrence: BE)
  Receive Date: 20140417
  Receipt Date: 20140526
  Transmission Date: 20141212
  Serious: Yes (Death)
  Sender: FDA-Public Use
  Company Number: BE-BIOGENIDEC-2014BI036441

PATIENT
  Sex: Female

DRUGS (6)
  1. AVONEX [Suspect]
     Indication: PRODUCT USED FOR UNKNOWN INDICATION
     Route: 030
     Dates: start: 20120419, end: 20130521
  2. CYMBALTA [Concomitant]
  3. ASAFLOW [Concomitant]
  4. DAPSONE [Concomitant]
  5. OXYBUTININE [Concomitant]
  6. PRETERAX [Concomitant]

REACTIONS (2)
  - Acute leukaemia [Fatal]
  - Karyotype analysis abnormal [Fatal]
